FAERS Safety Report 8092266-4 (Version None)
Quarter: 2012Q1

REPORT INFORMATION
  Report Type: 
  Country: None (occurrence: None)
  Receive Date: 20120129
  Receipt Date: 20111121
  Transmission Date: 20120608
  Serious: No
  Sender: FDA-Public Use
  Company Number: US-ABBOTT-11P-163-0876916-00

PATIENT
  Sex: Female

DRUGS (1)
  1. HUMIRA [Suspect]
     Indication: RHEUMATOID ARTHRITIS
     Dosage: UNDER SKIN
     Route: 058
     Dates: start: 20111101

REACTIONS (6)
  - INJECTION SITE PRURITUS [None]
  - RASH [None]
  - INJECTION SITE ERYTHEMA [None]
  - FLUSHING [None]
  - INJECTION SITE HAEMATOMA [None]
  - DYSGEUSIA [None]
